FAERS Safety Report 19538026 (Version 1)
Quarter: 2021Q3

REPORT INFORMATION
  Report Type: Spontaneous
  Country: DE (occurrence: DE)
  Receive Date: 20210713
  Receipt Date: 20210713
  Transmission Date: 20211014
  Serious: Yes (Life-Threatening, Other)
  Sender: FDA-Public Use
  Company Number: DE-MYLANLABS-2021M1040852

PATIENT
  Age: 60 Year
  Sex: Female
  Weight: 63 kg

DRUGS (49)
  1. DEXAMETHASONE. [Suspect]
     Active Substance: DEXAMETHASONE
     Dosage: 1 DOSAGE FORM, SINGLE
     Route: 014
     Dates: start: 20181106
  2. DEXAMETHASONE. [Suspect]
     Active Substance: DEXAMETHASONE
     Dosage: 1 DOSAGE FORM, SINGLE
     Route: 014
     Dates: start: 20181120
  3. DEXAMETHASONE. [Suspect]
     Active Substance: DEXAMETHASONE
     Dosage: 1 DOSAGE FORM, SINGLE
     Route: 014
     Dates: start: 20181130, end: 20181130
  4. PREDNISOLON JENAPHARM [Suspect]
     Active Substance: PREDNISOLONE
     Indication: EPICONDYLITIS
     Dosage: 60 MILLIGRAM, QD (20 MILLIGRAM, TID)
     Route: 048
     Dates: start: 201810
  5. PREDNISOLON JENAPHARM [Suspect]
     Active Substance: PREDNISOLONE
     Dosage: 40 MILLIGRAM, QD (20 MILLIGRAM, BID)
     Route: 048
     Dates: start: 201810
  6. LIPOTALON [Suspect]
     Active Substance: DEXAMETHASONE PALMITATE
     Dosage: 1 DOSAGE FORM (SINGLE; RIGHT KNEE AND FOOT)
     Route: 014
     Dates: start: 20181120
  7. LIPOTALON [Suspect]
     Active Substance: DEXAMETHASONE PALMITATE
     Dosage: 1 DOSAGE FORM (SINGLE; LEFT KNEE)
     Route: 014
     Dates: start: 20181130
  8. LIPOTALON [Suspect]
     Active Substance: DEXAMETHASONE PALMITATE
     Dosage: 1 DOSAGE FORM  (SINGLE; BOTH KNEES AND FOOT)
     Route: 014
     Dates: start: 20181204, end: 20181204
  9. ORTOTON K.I.S. [Concomitant]
     Dosage: 1 DOSAGE FORM, (SINGLE)
     Route: 065
     Dates: start: 20181102, end: 20181102
  10. DICLOFENAC [Concomitant]
     Active Substance: DICLOFENAC
     Dosage: 1 MILLILITER, SINGLE
     Route: 014
     Dates: start: 20181102, end: 20181102
  11. LIPOTALON [Suspect]
     Active Substance: DEXAMETHASONE PALMITATE
     Dosage: 1 DOSAGE FORM (SINGLE; RIGHT KNEE AND FOOT)
     Route: 014
     Dates: start: 20181113
  12. ORTOTON K.I.S. [Concomitant]
     Indication: PRODUCT USED FOR UNKNOWN INDICATION
     Dosage: 1 DOSAGE FORM (SINGLE)
     Route: 065
     Dates: start: 20181019, end: 20181019
  13. ORTOTON K.I.S. [Concomitant]
     Dosage: 1 DOSAGE FORM, (SINGLE)
     Route: 065
     Dates: start: 20181016, end: 20181016
  14. HYALART [Concomitant]
     Dosage: 1 DOSAGE FORM, SINGLE; BOTH KNEES
     Route: 014
     Dates: start: 20181204, end: 20181204
  15. HYALART [Concomitant]
     Dosage: 1 DOSAGE FORM, SINGLE; RIGHT KNEE
     Route: 014
     Dates: start: 20181106, end: 20181106
  16. NOVAMINSULFON [Concomitant]
     Active Substance: METAMIZOLE
     Indication: PRODUCT USED FOR UNKNOWN INDICATION
     Dosage: 1 DOSAGE FORM, SINGLE
     Route: 065
     Dates: start: 20181016, end: 20181016
  17. MEAVERIN                           /00010302/ [Concomitant]
     Dosage: 1 DOSAGE FORM, SINGLE; BOTH KNEES AND FOOT
     Route: 014
     Dates: start: 20181204, end: 20181204
  18. DEXAMETHASONE. [Suspect]
     Active Substance: DEXAMETHASONE
     Indication: ARTHRALGIA
     Dosage: 1 DOSAGE FORM, SINGLE
     Route: 014
     Dates: start: 20181019
  19. DEXAMETHASONE. [Suspect]
     Active Substance: DEXAMETHASONE
     Dosage: 1 DOSAGE FORM, SINGLE
     Route: 014
     Dates: start: 20181102
  20. DICLOFENAC [Concomitant]
     Active Substance: DICLOFENAC
     Dosage: 1 MILLILITER, SINGLE
     Route: 014
     Dates: start: 20181120, end: 20181120
  21. DICLOFENAC [Concomitant]
     Active Substance: DICLOFENAC
     Dosage: 1 MILLILITER, SINGLE
     Route: 014
     Dates: start: 20181019, end: 20181019
  22. PREDNISOLON JENAPHARM [Suspect]
     Active Substance: PREDNISOLONE
     Indication: ARTHRALGIA
     Dosage: 20 MILLIGRAM, QD
     Route: 048
     Dates: start: 2018
  23. LIPOTALON [Suspect]
     Active Substance: DEXAMETHASONE PALMITATE
     Indication: EPICONDYLITIS
     Dosage: 1 DOSAGE FORM (SINGLE; LEFT ELBO)
     Route: 014
     Dates: start: 20181019
  24. LIPOTALON [Suspect]
     Active Substance: DEXAMETHASONE PALMITATE
     Dosage: 1 DOSAGE FORM (SINGLE; RIGHT KNEE)
     Route: 014
     Dates: start: 20181102
  25. HYALART [Concomitant]
     Dosage: 1 DOSAGE FORM, SINGLE; RIGHT KNEE
     Route: 014
     Dates: start: 20181120, end: 20181120
  26. DICLOFENAC [Concomitant]
     Active Substance: DICLOFENAC
     Dosage: 1 MILLILITER, SINGLE
     Route: 014
     Dates: start: 20181130, end: 20181130
  27. MEAVERIN                           /00010302/ [Concomitant]
     Dosage: 1 DOSAGE FORM, SINGLE; LEFT ELBOW
     Route: 014
     Dates: start: 20181019, end: 20181019
  28. MEAVERIN                           /00010302/ [Concomitant]
     Dosage: 1 DOSAGE FORM, SINGLE; BOTH KNEES AND FOOT
     Route: 014
     Dates: start: 20181127, end: 20181127
  29. DEXAMETHASONE. [Suspect]
     Active Substance: DEXAMETHASONE
     Indication: EPICONDYLITIS
     Dosage: 1 DOSAGE FORM, SINGLE
     Route: 014
     Dates: start: 20181016
  30. LIPOTALON [Suspect]
     Active Substance: DEXAMETHASONE PALMITATE
     Indication: ARTHRALGIA
     Dosage: 1 DOSAGE FORM (SINGLE; LEFT ELBOW)
     Route: 014
     Dates: start: 20181016
  31. NOVAMINSULFON [Concomitant]
     Active Substance: METAMIZOLE
     Dosage: 1 DOSAGE FORM, SINGLE
     Route: 065
     Dates: start: 20181019, end: 20181019
  32. MEAVERIN                           /00010302/ [Concomitant]
     Dosage: 1 DOSAGE FORM, SINGLE; RIGHT KNEE
     Route: 014
     Dates: start: 20181106, end: 20181106
  33. DEXAMETHASONE. [Suspect]
     Active Substance: DEXAMETHASONE
     Dosage: 1 DOSAGE FORM, SINGLE
     Route: 014
     Dates: start: 20181127
  34. LIPOTALON [Suspect]
     Active Substance: DEXAMETHASONE PALMITATE
     Dosage: 1 DOSAGE FORM (SINGLE; BOTH KNEES AND FOOT)
     Route: 014
     Dates: start: 20181127
  35. HYALART [Concomitant]
     Indication: PRODUCT USED FOR UNKNOWN INDICATION
     Dosage: 1 DOSAGE FORM, SINGLE; RIGHT KNEE
     Route: 014
     Dates: start: 20181113, end: 20181113
  36. DICLOFENAC [Concomitant]
     Active Substance: DICLOFENAC
     Dosage: 1 MILLILITER, SINGLE
     Route: 014
     Dates: start: 20181127, end: 20181127
  37. MEAVERIN                           /00010302/ [Concomitant]
     Dosage: 1 DOSAGE FORM, SINGLE; LEFT KNEE
     Route: 014
     Dates: start: 20181130, end: 20181130
  38. DEXAMETHASONE. [Suspect]
     Active Substance: DEXAMETHASONE
     Dosage: 1 DOSAGE FORM, SINGLE
     Route: 014
     Dates: start: 20181113
  39. PREDNISOLON JENAPHARM [Suspect]
     Active Substance: PREDNISOLONE
     Dosage: 20 MILLIGRAM (30X 20 MG)
     Route: 048
     Dates: start: 20181204, end: 20181215
  40. LIPOTALON [Suspect]
     Active Substance: DEXAMETHASONE PALMITATE
     Dosage: 1 DOSAGE FORM (SINGLE; RIGHT KNEE)
     Route: 014
     Dates: start: 20181106
  41. NOVAMINSULFON [Concomitant]
     Active Substance: METAMIZOLE
     Dosage: 1 DOSAGE FORM, SINGLE
     Route: 065
     Dates: start: 20181102, end: 20181102
  42. DICLOFENAC [Concomitant]
     Active Substance: DICLOFENAC
     Indication: PRODUCT USED FOR UNKNOWN INDICATION
     Dosage: 1 MILLILITER, SINGLE
     Route: 014
     Dates: start: 20181016, end: 20181016
  43. MEAVERIN                           /00010302/ [Concomitant]
     Dosage: 1 DOSAGE FORM, SINGLE; RIGHT KNEE
     Route: 014
     Dates: start: 20181102, end: 20181102
  44. MEAVERIN                           /00010302/ [Concomitant]
     Dosage: 1 DOSAGE FORM, SINGLE; RIGHT KNEE AND FOOT
     Route: 014
     Dates: start: 20181120, end: 20181120
  45. HYALART [Concomitant]
     Dosage: 1 DOSAGE FORM, SINGLE; RIGHT KNEE
     Route: 014
     Dates: start: 20181127, end: 20181127
  46. DICLOFENAC [Concomitant]
     Active Substance: DICLOFENAC
     Dosage: 1 MILLILITER, SINGLE
     Route: 014
     Dates: start: 20181113, end: 20181113
  47. DICLOFENAC [Concomitant]
     Active Substance: DICLOFENAC
     Dosage: 1 MILLILITER, SINGLE
     Route: 014
     Dates: start: 20181106, end: 20181106
  48. MEAVERIN                           /00010302/ [Concomitant]
     Indication: PRODUCT USED FOR UNKNOWN INDICATION
     Dosage: 1 DOSAGE FORM, SINGLE; RIGHT KNEE AND FOOT
     Route: 014
     Dates: start: 20181113, end: 20181113
  49. MEAVERIN                           /00010302/ [Concomitant]
     Dosage: 1 DOSAGE FORM, SINGLE; LEFT ELBOW
     Route: 014
     Dates: start: 20181016, end: 20181016

REACTIONS (64)
  - Influenza like illness [Not Recovered/Not Resolved]
  - Fatigue [Unknown]
  - Nausea [Recovered/Resolved]
  - Polycythaemia [Recovered/Resolved]
  - Vision blurred [Unknown]
  - Mental disorder [Recovered/Resolved]
  - Aggression [Recovered/Resolved]
  - Joint instability [Not Recovered/Not Resolved]
  - Application site irritation [Unknown]
  - Abdominal distension [Unknown]
  - Anaphylactic reaction [Unknown]
  - Cushing^s syndrome [Not Recovered/Not Resolved]
  - Cystocele [Not Recovered/Not Resolved]
  - Sodium retention [Unknown]
  - Disturbance in attention [Not Recovered/Not Resolved]
  - Dizziness [Unknown]
  - Eczema [Unknown]
  - Leukocytosis [Recovered/Resolved]
  - Osteoporosis [Unknown]
  - Skin atrophy [Unknown]
  - Hyperaesthesia [Unknown]
  - Dermatitis allergic [Not Recovered/Not Resolved]
  - Hyperhidrosis [Unknown]
  - Blood pressure increased [Recovered/Resolved]
  - Application site pain [Not Recovered/Not Resolved]
  - Paraesthesia [Recovered/Resolved]
  - Balance disorder [Not Recovered/Not Resolved]
  - Burning sensation [Unknown]
  - Muscle atrophy [Unknown]
  - Drug intolerance [Unknown]
  - Inappropriate schedule of product administration [Not Recovered/Not Resolved]
  - Pelvic floor muscle weakness [Not Recovered/Not Resolved]
  - Infection susceptibility increased [Unknown]
  - Atrophy [Unknown]
  - Bone pain [Recovered/Resolved]
  - Blood potassium decreased [Recovered/Resolved]
  - Skin swelling [Recovered/Resolved]
  - Blood glucose increased [Recovered/Resolved]
  - Hallucination [Not Recovered/Not Resolved]
  - Muscular weakness [Recovered/Resolved]
  - Oedema peripheral [Recovered/Resolved]
  - Intracranial pressure increased [Unknown]
  - Hydrometra [Recovered/Resolved]
  - Pollakiuria [Recovered/Resolved]
  - Asthenia [Recovered/Resolved]
  - Impaired healing [Unknown]
  - Pruritus [Unknown]
  - Increased appetite [Unknown]
  - Sleep disorder [Recovered/Resolved]
  - Adrenal insufficiency [Unknown]
  - Arthralgia [Not Recovered/Not Resolved]
  - Pyrexia [Not Recovered/Not Resolved]
  - Osteonecrosis [Unknown]
  - Abdominal discomfort [Unknown]
  - Platelet count increased [Recovered/Resolved]
  - Lymphopenia [Recovered/Resolved]
  - Oedema mucosal [Recovered/Resolved]
  - Seizure [Unknown]
  - Weight increased [Unknown]
  - Thirst [Recovered/Resolved]
  - Headache [Unknown]
  - Arthropathy [Unknown]
  - Emphysema [Recovered/Resolved]
  - Eosinopenia [Recovered/Resolved]

NARRATIVE: CASE EVENT DATE: 201810
